FAERS Safety Report 5479291-4 (Version None)
Quarter: 2007Q4

REPORT INFORMATION
  Report Type: 
  Country: None (occurrence: None)
  Receive Date: 20071008
  Receipt Date: 20070925
  Transmission Date: 20080405
  Serious: Yes (Hospitalization)
  Sender: FDA-Public Use
  Company Number: US-NOVOPROD-266878

PATIENT
  Sex: Male
  Weight: 92.7 kg

DRUGS (15)
  1. NOVORAPID FLEXPEN [Suspect]
     Indication: TYPE 1 DIABETES MELLITUS
     Dosage: 70 U (CHO ERSTIMATED)
     Route: 058
     Dates: start: 20060629, end: 20070819
  2. NOVORAPID FLEXPEN [Suspect]
     Dosage: 70 U, QD (CHO COUNT ESTIMATE)
     Route: 058
     Dates: start: 20070824, end: 20070905
  3. NOVORAPID FLEXPEN [Suspect]
     Route: 058
     Dates: start: 20070905
  4. INSULIN DETEMIR FLEXPEN [Suspect]
     Indication: TYPE 1 DIABETES MELLITUS
     Dosage: 38 U, QD (SPLIT DOSE)
     Route: 058
     Dates: start: 20060629, end: 20070819
  5. INSULIN DETEMIR FLEXPEN [Suspect]
     Dosage: 19 U, BID
     Route: 058
     Dates: start: 20070824, end: 20070905
  6. INSULIN DETEMIR FLEXPEN [Suspect]
     Dosage: 17 U, BID
     Route: 058
     Dates: start: 20070905
  7. HYDROCODONE BITARTRATE AND ACETAMINOPHEN [Concomitant]
     Indication: PAIN
     Dosage: 5/325 MG AS NEEDED
     Route: 048
     Dates: start: 20070717
  8. FLEXERIL                           /00428402/ [Concomitant]
     Indication: MYALGIA
     Dosage: 10 MG, QD
     Route: 048
     Dates: start: 20070716
  9. DICLOFENAC SODIUM [Concomitant]
     Indication: INFLAMMATION
     Dosage: 50 MG, QD
     Route: 048
     Dates: start: 20070717
  10. ASPIRIN [Concomitant]
     Indication: CARDIAC DISORDER
     Dosage: 325 MG, QD
     Route: 048
     Dates: start: 20051101
  11. TYLENOL (CAPLET) [Concomitant]
     Indication: PAIN
     Dosage: 650 MG, EVERY 6 HOURS AS NEEDED
     Route: 048
  12. KEPPRA [Concomitant]
     Indication: CONVULSION
     Dosage: 500 MG, QD
     Route: 048
  13. AUGMENTIN '125' [Concomitant]
     Indication: ANTIBIOTIC PROPHYLAXIS
     Dosage: 875/125 MG, UNK
     Route: 048
  14. MAGNESIUM OXIDE [Concomitant]
     Indication: MEDICAL DIET
     Dosage: 400 MG, BID
     Route: 048
  15. VYTORIN [Concomitant]
     Indication: HYPERCHOLESTEROLAEMIA
     Dosage: 10/40 MG

REACTIONS (1)
  - CONVULSION [None]
